FAERS Safety Report 12459200 (Version 1)
Quarter: 2016Q2

REPORT INFORMATION
  Report Type: Report from Study
  Country: US (occurrence: US)
  Receive Date: 20160613
  Receipt Date: 20160613
  Transmission Date: 20160815
  Serious: No
  Sender: FDA-Public Use
  Company Number: US-AMGEN-USASL2016072765

PATIENT
  Age: 48 Year
  Sex: Male

DRUGS (1)
  1. ENBREL [Suspect]
     Active Substance: ETANERCEPT
     Indication: ARTHRITIS
     Dosage: UNK
     Route: 065
     Dates: start: 2012

REACTIONS (18)
  - Screaming [Unknown]
  - Weight decreased [Unknown]
  - Limb discomfort [Unknown]
  - Sleep disorder [Unknown]
  - Musculoskeletal disorder [Unknown]
  - Vein disorder [Unknown]
  - Pain [Unknown]
  - Dysstasia [Unknown]
  - Contusion [Unknown]
  - Feeling abnormal [Unknown]
  - Energy increased [Unknown]
  - Muscle spasms [Not Recovered/Not Resolved]
  - Blood pressure abnormal [Unknown]
  - Hypoaesthesia [Not Recovered/Not Resolved]
  - Pain in extremity [Unknown]
  - Burning sensation [Unknown]
  - Feeling hot [Not Recovered/Not Resolved]
  - Off label use [Unknown]

NARRATIVE: CASE EVENT DATE: 2012
